FAERS Safety Report 10219953 (Version 1)
Quarter: 2014Q2

REPORT INFORMATION
  Report Type: Spontaneous
  Country: GB (occurrence: GB)
  Receive Date: 20140605
  Receipt Date: 20140605
  Transmission Date: 20141212
  Serious: Yes (Other)
  Sender: FDA-Public Use
  Company Number: GB-ASTRAZENECA-2014SE38392

PATIENT
  Age: 49 Year
  Sex: Female
  Weight: 86 kg

DRUGS (3)
  1. ESOMEPRAZOLE [Suspect]
     Route: 048
     Dates: start: 20140402, end: 20140505
  2. OMEPRAZOLE [Suspect]
     Route: 048
     Dates: start: 20120303
  3. OMEPRAZOLE [Suspect]
     Route: 048

REACTIONS (7)
  - Anxiety [Not Recovered/Not Resolved]
  - Disturbance in attention [Not Recovered/Not Resolved]
  - Photophobia [Not Recovered/Not Resolved]
  - Migraine [Not Recovered/Not Resolved]
  - Vertigo labyrinthine [Not Recovered/Not Resolved]
  - Vision blurred [Not Recovered/Not Resolved]
  - Dizziness [Not Recovered/Not Resolved]
